FAERS Safety Report 5875537-9 (Version None)
Quarter: 2008Q3

REPORT INFORMATION
  Report Type: 
  Country: None (occurrence: None)
  Receive Date: 20080909
  Receipt Date: 20080819
  Transmission Date: 20090109
  Serious: Yes (Other)
  Sender: FDA-Public Use
  Company Number: SI-ELI_LILLY_AND_COMPANY-SI200809001497

PATIENT
  Sex: Female

DRUGS (1)
  1. OLANZAPINE [Suspect]
     Indication: MENTAL DISORDER
     Dosage: 5 MG, UNK
     Route: 048
     Dates: start: 20080401, end: 20080501

REACTIONS (1)
  - CHEYNE-STOKES RESPIRATION [None]
